FAERS Safety Report 19447913 (Version 10)
Quarter: 2022Q3

REPORT INFORMATION
  Report Type: Spontaneous
  Country: US (occurrence: US)
  Receive Date: 20210622
  Receipt Date: 20220718
  Transmission Date: 20221027
  Serious: No
  Sender: FDA-Public Use
  Company Number: US-GLAXOSMITHKLINE-US2021AMR135478

PATIENT
  Age: 63 Year
  Sex: Female

DRUGS (6)
  1. ZEJULA [Suspect]
     Active Substance: NIRAPARIB
     Indication: Ovarian cancer
     Dosage: 100 MG, QD
     Route: 048
     Dates: start: 20210611
  2. ZEJULA [Suspect]
     Active Substance: NIRAPARIB
     Dosage: 100 MG, QD (QPM)
  3. ZEJULA [Suspect]
     Active Substance: NIRAPARIB
     Dosage: 100 MG, QD
     Route: 048
  4. ZEJULA [Suspect]
     Active Substance: NIRAPARIB
     Dosage: 200 MG, QD
     Route: 048
  5. ZEJULA [Suspect]
     Active Substance: NIRAPARIB
     Dosage: 200 MG, QD
     Dates: start: 20220603
  6. ZEJULA [Suspect]
     Active Substance: NIRAPARIB
     Dosage: 100 MG, QD
     Route: 048

REACTIONS (18)
  - Fatigue [Unknown]
  - Nausea [Recovering/Resolving]
  - Lactose intolerance [Unknown]
  - Multiple allergies [Unknown]
  - Nocturnal dyspnoea [Unknown]
  - Constipation [Unknown]
  - Blood pressure decreased [Unknown]
  - Haemoglobin decreased [Not Recovered/Not Resolved]
  - Abdominal pain [Unknown]
  - Blood urea increased [Unknown]
  - Carbohydrate antigen 125 increased [Not Recovered/Not Resolved]
  - Pulmonary mass [Unknown]
  - Anaemia [Unknown]
  - Weight decreased [Unknown]
  - Haematocrit decreased [Not Recovered/Not Resolved]
  - Abdominal mass [Unknown]
  - Product dose omission issue [Unknown]
  - Off label use [Unknown]

NARRATIVE: CASE EVENT DATE: 20210601
